FAERS Safety Report 6640134-4 (Version None)
Quarter: 2010Q1

REPORT INFORMATION
  Report Type: 
  Country: None (occurrence: None)
  Receive Date: 20100318
  Receipt Date: 20100309
  Transmission Date: 20100710
  Serious: Yes (Other)
  Sender: FDA-Public Use
  Company Number: US-AMGEN-QUU393878

PATIENT
  Sex: Female
  Weight: 60.8 kg

DRUGS (11)
  1. SENSIPAR [Suspect]
     Indication: DRUG USE FOR UNKNOWN INDICATION
     Route: 048
     Dates: start: 20091022, end: 20100201
  2. ACIPHEX [Concomitant]
  3. PLAVIX [Concomitant]
  4. METOPROLOL TARTRATE [Concomitant]
  5. MEVACOR [Concomitant]
  6. PREMARIN [Concomitant]
  7. ATIVAN [Concomitant]
  8. BENADRYL [Concomitant]
  9. DARVOCET-N 100 [Concomitant]
  10. LASIX [Concomitant]
  11. POTASSIUM CHLORIDE [Concomitant]

REACTIONS (10)
  - AMYLOIDOSIS [None]
  - DECREASED APPETITE [None]
  - ERYTHEMA [None]
  - INFLUENZA [None]
  - NEUROPATHY PERIPHERAL [None]
  - OEDEMA PERIPHERAL [None]
  - PRURITUS [None]
  - RASH [None]
  - URTICARIA [None]
  - WEIGHT DECREASED [None]
